FAERS Safety Report 24087484 (Version 1)
Quarter: 2024Q3

REPORT INFORMATION
  Report Type: Spontaneous
  Country: IN (occurrence: IN)
  Receive Date: 20240714
  Receipt Date: 20240714
  Transmission Date: 20241017
  Serious: Yes (Death)
  Sender: ROCHE
  Company Number: IN-ROCHE-3530138

PATIENT
  Age: 75 Year
  Sex: Female

DRUGS (1)
  1. TECENTRIQ [Suspect]
     Active Substance: ATEZOLIZUMAB
     Indication: Endometrial cancer
     Route: 042
     Dates: start: 20240228

REACTIONS (3)
  - Off label use [Unknown]
  - Off label use [Unknown]
  - Disease progression [Fatal]
